FAERS Safety Report 4846018-6 (Version None)
Quarter: 2005Q4

REPORT INFORMATION
  Report Type: 
  Country: None (occurrence: None)
  Receive Date: 20051206
  Receipt Date: 20051206
  Transmission Date: 20060501
  Serious: Yes (Life-Threatening, Hospitalization)
  Sender: FDA-Public Use
  Company Number: None

PATIENT
  Age: 27 Year
  Sex: Female
  Weight: 58.9676 kg

DRUGS (1)
  1. MIRCETTE [Suspect]
     Indication: PULMONARY EMBOLISM
     Dosage: ONE PILL DAILY PO
     Route: 048
     Dates: start: 20010120, end: 20050908

REACTIONS (1)
  - PULMONARY EMBOLISM [None]
